FAERS Safety Report 16665511 (Version 1)
Quarter: 2019Q3

REPORT INFORMATION
  Report Type: Spontaneous
  Country: DE (occurrence: DE)
  Receive Date: 20190803
  Receipt Date: 20190803
  Transmission Date: 20191004
  Serious: Yes (Other)
  Sender: FDA-Public Use
  Company Number: PHHY2019DE176078

PATIENT
  Age: 59 Year
  Sex: Male
  Weight: 76 kg

DRUGS (12)
  1. GILENYA [Suspect]
     Active Substance: FINGOLIMOD HYDROCHLORIDE
     Indication: MULTIPLE SCLEROSIS
     Dosage: 1 MG, QOD (EVERY TWO DAY)
     Route: 048
     Dates: start: 20150114, end: 20180516
  2. URBASON [Concomitant]
     Active Substance: METHYLPREDNISOLONE
     Dosage: 1000 MG, UNK
     Route: 042
     Dates: start: 20181001, end: 20181005
  3. ASPIRIN. [Concomitant]
     Active Substance: ASPIRIN
     Indication: CEREBROVASCULAR ACCIDENT PROPHYLAXIS
     Route: 048
     Dates: start: 200805
  4. FENISTIL [Concomitant]
     Active Substance: DIMETHINDENE
     Indication: PRODUCT USED FOR UNKNOWN INDICATION
     Dosage: 1 MG, QMO
     Route: 042
     Dates: start: 20180723
  5. OCRELIZUMAB. [Suspect]
     Active Substance: OCRELIZUMAB
     Indication: MULTIPLE SCLEROSIS
     Dosage: 300 MG, UNK
     Route: 042
     Dates: start: 20180723
  6. URBASON [Concomitant]
     Active Substance: METHYLPREDNISOLONE
     Indication: PRODUCT USED FOR UNKNOWN INDICATION
     Dosage: 1000 MG, UNK
     Route: 040
     Dates: start: 20181203, end: 20181205
  7. URBASON [Concomitant]
     Active Substance: METHYLPREDNISOLONE
     Dosage: 1000 MG, UNK
     Route: 040
     Dates: start: 20181016, end: 20181018
  8. CANDESARTAN. [Concomitant]
     Active Substance: CANDESARTAN
     Indication: HYPERTENSION
     Dosage: 16 MG, UNK
     Route: 048
     Dates: start: 20141029
  9. OCRELIZUMAB. [Suspect]
     Active Substance: OCRELIZUMAB
     Dosage: 600 MG, UNK
     Route: 042
     Dates: start: 20180806
  10. URBASON [Concomitant]
     Active Substance: METHYLPREDNISOLONE
     Dosage: 250 MG, UNK
     Route: 042
     Dates: start: 20181023, end: 20181026
  11. VIGANTOLETTEN [Concomitant]
     Active Substance: CHOLECALCIFEROL
     Indication: VITAMIN D DEFICIENCY
     Route: 048
     Dates: start: 20180704
  12. ZOPLICONE [Concomitant]
     Active Substance: ZOPICLONE
     Indication: SLEEP DISORDER
     Route: 048
     Dates: start: 20171205

REACTIONS (5)
  - Osteoarthritis [Not Recovered/Not Resolved]
  - Multiple sclerosis relapse [Recovered/Resolved with Sequelae]
  - Multiple sclerosis relapse [Recovered/Resolved]
  - Gait disturbance [Recovered/Resolved with Sequelae]
  - Upper respiratory tract infection [Recovered/Resolved]

NARRATIVE: CASE EVENT DATE: 20181001
